FAERS Safety Report 24388467 (Version 2)
Quarter: 2024Q4

REPORT INFORMATION
  Report Type: Spontaneous
  Country: US (occurrence: US)
  Receive Date: 20241002
  Receipt Date: 20241014
  Transmission Date: 20250114
  Serious: Yes (Death, Hospitalization, Other)
  Sender: PFIZER
  Company Number: US-SEATTLE GENETICS-2020SGN00037

PATIENT
  Age: 72 Year
  Sex: Female

DRUGS (4)
  1. ADCETRIS [Suspect]
     Active Substance: BRENTUXIMAB VEDOTIN
     Indication: Peripheral T-cell lymphoma unspecified
     Dosage: 1.8 MG/KG, CYCLIC[EVERY 21 DAYS ]
     Route: 042
     Dates: start: 20191025, end: 20191118
  2. DOXORUBICIN HYDROCHLORIDE [Suspect]
     Active Substance: DOXORUBICIN HYDROCHLORIDE
     Indication: Peripheral T-cell lymphoma unspecified
     Dosage: UNK
  3. CYCLOPHOSPHAMIDE [Suspect]
     Active Substance: CYCLOPHOSPHAMIDE
     Indication: Peripheral T-cell lymphoma unspecified
     Dosage: UNK
  4. PREDNISONE [Suspect]
     Active Substance: PREDNISONE
     Indication: Peripheral T-cell lymphoma unspecified
     Dosage: UNK

REACTIONS (6)
  - Sepsis [Fatal]
  - Hypercalcaemia [Fatal]
  - Neoplasm progression [Fatal]
  - Sinusitis [Unknown]
  - Pleural effusion [Unknown]
  - Pneumocystis jirovecii pneumonia [Unknown]

NARRATIVE: CASE EVENT DATE: 20191218
